FAERS Safety Report 18009811 (Version 2)
Quarter: 2020Q3

REPORT INFORMATION
  Report Type: Report from Study
  Country: IT (occurrence: IT)
  Receive Date: 20200710
  Receipt Date: 20200717
  Transmission Date: 20201103
  Serious: Yes (Hospitalization)
  Sender: FDA-Public Use
  Company Number: IT-MYLANLABS-2020M1062728

PATIENT
  Age: 71 Year
  Sex: Male

DRUGS (4)
  1. TAMSULOSIN MYLAN GENERICS 0,4 MG CAPSULE RIGIDE A RILASCIO MODIFICATO [Suspect]
     Active Substance: TAMSULOSIN
     Indication: BENIGN PROSTATIC HYPERPLASIA
     Dosage: 1 DOSAGE FORM, QD
     Route: 048
     Dates: start: 20200103, end: 20200113
  2. ACARPHAGE [Concomitant]
     Active Substance: ACARBOSE
     Dosage: UNK
     Route: 048
  3. BATIF [Concomitant]
     Dosage: UNK
     Route: 048
     Dates: start: 20200103, end: 20200113
  4. GIANT [Concomitant]
     Active Substance: AMLODIPINE BESYLATE\OLMESARTAN MEDOXOMIL
     Dosage: UNK
     Route: 048

REACTIONS (4)
  - Malaise [Recovered/Resolved]
  - Vertigo [Recovered/Resolved]
  - Headache [Recovered/Resolved]
  - Loss of consciousness [Recovered/Resolved]

NARRATIVE: CASE EVENT DATE: 20200113
